FAERS Safety Report 12747666 (Version 1)
Quarter: 2016Q3

REPORT INFORMATION
  Report Type: Spontaneous
  Country: PL (occurrence: PL)
  Receive Date: 20160915
  Receipt Date: 20160915
  Transmission Date: 20161109
  Serious: Yes (Other)
  Sender: FDA-Public Use
  Company Number: PL-ABBVIE-16P-129-1728516-00

PATIENT
  Age: 50 Year
  Sex: Female

DRUGS (1)
  1. LIPANTHYL [Suspect]
     Active Substance: FENOFIBRATE
     Indication: PRODUCT USED FOR UNKNOWN INDICATION
     Dosage: LIPANTHYL SUPRA 215
     Route: 065

REACTIONS (2)
  - Reaction to drug excipients [Unknown]
  - Asthma [Unknown]
